FAERS Safety Report 8570844 (Version 4)
Quarter: 2013Q2

REPORT INFORMATION
  Report Type: Spontaneous
  Country: US (occurrence: US)
  Receive Date: 20120521
  Receipt Date: 20130401
  Transmission Date: 20140414
  Serious: Yes (Hospitalization, Other)
  Sender: FDA-Public Use
  Company Number: US-PFIZER INC-2012120805

PATIENT
  Age: 77 Year
  Sex: Female
  Weight: 57.14 kg

DRUGS (8)
  1. ACCURETIC [Suspect]
     Indication: HYPERTENSION
     Dosage: [QUINAPRIL HCL 20 MG/ HYDROCHLOROTHIAZIDE 12.5], 1X/DAY
     Route: 048
     Dates: start: 20110613, end: 20120518
  2. TOPROL XL [Concomitant]
     Indication: HYPERTENSION
     Dosage: 25 MG, 1 TABLET PM, DAILY
     Dates: start: 20100322
  3. HYDROCODONE [Concomitant]
     Indication: BACK DISORDER
     Dosage: UNK
  4. HYDROCODONE [Concomitant]
     Indication: INTERVERTEBRAL DISC DEGENERATION
  5. TYLENOL [Concomitant]
     Indication: BACK DISORDER
     Dosage: UNK, AS NEEDED
  6. TYLENOL [Concomitant]
     Indication: INTERVERTEBRAL DISC DEGENERATION
  7. TRAMADOL [Concomitant]
     Dosage: 50 MG, UNK
  8. TOPROL [Concomitant]
     Dosage: 25, UNK

REACTIONS (6)
  - Hyponatraemia [Recovered/Resolved]
  - Electrolyte imbalance [Unknown]
  - Hypertension [Unknown]
  - Syncope [Unknown]
  - Vertigo [Unknown]
  - Blood chloride decreased [Not Recovered/Not Resolved]
